FAERS Safety Report 9997363 (Version 2)
Quarter: 2014Q2

REPORT INFORMATION
  Report Type: Spontaneous
  Country: US (occurrence: US)
  Receive Date: 20140311
  Receipt Date: 20140421
  Transmission Date: 20141212
  Serious: No
  Sender: FDA-Public Use
  Company Number: US-009507513-1403USA002182

PATIENT
  Age: 71 Year
  Sex: Female
  Weight: 68.27 kg

DRUGS (6)
  1. OXYTROL FOR WOMEN [Suspect]
     Indication: MICTURITION URGENCY
     Dosage: UNK, UNKNOWN
     Route: 062
     Dates: start: 20131210, end: 20140301
  2. OXYTROL FOR WOMEN [Suspect]
     Indication: POLLAKIURIA
  3. OXYTROL FOR WOMEN [Suspect]
     Indication: URINARY INCONTINENCE
  4. LYRICA [Concomitant]
     Indication: SYRINGOMYELIA
     Dosage: UNK, UNKNOWN
  5. LYRICA [Concomitant]
     Indication: ARNOLD-CHIARI MALFORMATION
  6. METHOTREXATE [Concomitant]
     Indication: RHEUMATOID ARTHRITIS
     Dosage: UNK, UNKNOWN
     Route: 062

REACTIONS (2)
  - Application site rash [Recovered/Resolved]
  - Erythema [Recovering/Resolving]
